FAERS Safety Report 13115509 (Version 3)
Quarter: 2017Q2

REPORT INFORMATION
  Report Type: Spontaneous
  Country: US (occurrence: US)
  Receive Date: 20170113
  Receipt Date: 20170411
  Transmission Date: 20170830
  Serious: Yes (Death, Hospitalization)
  Sender: FDA-Public Use
  Company Number: US-BAUSCH-BL-2017-000863

PATIENT
  Sex: Female

DRUGS (1)
  1. XIFAXAN [Suspect]
     Active Substance: RIFAXIMIN
     Indication: LIVER DISORDER
     Route: 065
     Dates: start: 20160826

REACTIONS (5)
  - Upper limb fracture [Unknown]
  - Lower limb fracture [Unknown]
  - Liver disorder [Fatal]
  - Fall [Unknown]
  - Off label use [Unknown]
